FAERS Safety Report 6395187-8 (Version None)
Quarter: 2009Q4

REPORT INFORMATION
  Report Type: 
  Country: None (occurrence: None)
  Receive Date: 20091009
  Receipt Date: 20091001
  Transmission Date: 20100525
  Serious: Yes (Hospitalization)
  Sender: FDA-Public Use
  Company Number: PHHO2009KR10807

PATIENT
  Sex: Female
  Weight: 61.6 kg

DRUGS (7)
  1. AMN107 AMN+CAP [Suspect]
     Indication: CHRONIC MYELOID LEUKAEMIA
     Dosage: 600 MG
     Route: 048
     Dates: start: 20080408, end: 20090815
  2. AMN107 AMN+CAP [Suspect]
     Dosage: NO TREATMENT
     Dates: start: 20090816, end: 20090916
  3. AMN107 AMN+CAP [Suspect]
     Dosage: UNK
     Dates: start: 20090917, end: 20090922
  4. GLIMEPIRIDE [Concomitant]
     Indication: DIABETES MELLITUS
     Dosage: UNK
  5. TELMISARTAN [Concomitant]
     Indication: HYPERTENSION
     Dosage: UNK
  6. CLOPIDOGREL [Concomitant]
     Indication: CEREBRAL INFARCTION
     Dosage: 15 MG, QD
     Route: 048
     Dates: start: 20081109, end: 20090601
  7. SARPOGRELATE HYDROCHLORIDE [Concomitant]
     Indication: CEREBRAL INFARCTION
     Dosage: 100 MG, TID
     Route: 048
     Dates: start: 20090601, end: 20090815

REACTIONS (6)
  - ARTERIOSCLEROSIS [None]
  - CRANIECTOMY [None]
  - FALL [None]
  - LOSS OF CONSCIOUSNESS [None]
  - SUBDURAL HAEMORRHAGE [None]
  - SURGERY [None]
